FAERS Safety Report 19784753 (Version 1)
Quarter: 2021Q3

REPORT INFORMATION
  Report Type: Spontaneous
  Country: US (occurrence: US)
  Receive Date: 20210903
  Receipt Date: 20210903
  Transmission Date: 20211014
  Serious: Yes (Hospitalization, Other)
  Sender: FDA-Public Use
  Company Number: None

PATIENT
  Age: 71 Year
  Sex: Male

DRUGS (1)
  1. REGEN?COV [Suspect]
     Active Substance: CASIRIVIMAB\IMDEVIMAB
     Indication: COVID-19
     Route: 042
     Dates: start: 20210802, end: 20210802

REACTIONS (10)
  - Thrombocytopenia [None]
  - Seizure like phenomena [None]
  - Hyponatraemia [None]
  - Syncope [None]
  - Blood sodium decreased [None]
  - Hypertension [None]
  - Tachycardia [None]
  - Nausea [None]
  - Blood potassium decreased [None]
  - Alcohol use [None]

NARRATIVE: CASE EVENT DATE: 20210802
